FAERS Safety Report 14572137 (Version 1)
Quarter: 2018Q1

REPORT INFORMATION
  Report Type: Spontaneous
  Country: US (occurrence: US)
  Receive Date: 20180223
  Receipt Date: 20180223
  Transmission Date: 20180509
  Serious: Yes (Death)
  Sender: FDA-Public Use
  Company Number: None

PATIENT
  Age: 76 Year
  Sex: Male

DRUGS (7)
  1. ASA [Concomitant]
     Active Substance: ASPIRIN
  2. TOBRAMYCIN 300MG/5ML 20ML= 4NEB [Suspect]
     Active Substance: TOBRAMYCIN
     Indication: BACTERIAL INFECTION
     Dosage: 1 VIAL BID 1 VIAL VIA NEBULIZER/INHALATION
     Route: 055
     Dates: start: 201705, end: 201802
  3. GABAPENTIN. [Concomitant]
     Active Substance: GABAPENTIN
  4. CARVEDIOL [Concomitant]
     Active Substance: CARVEDILOL
  5. LISINOPRIL. [Concomitant]
     Active Substance: LISINOPRIL
  6. ROSUVASTAT [Concomitant]
  7. ZYDELIG [Concomitant]
     Active Substance: IDELALISIB

REACTIONS (1)
  - Death [None]
